FAERS Safety Report 19676604 (Version 3)
Quarter: 2021Q3

REPORT INFORMATION
  Report Type: Spontaneous
  Country: DE (occurrence: DE)
  Receive Date: 20210809
  Receipt Date: 20210817
  Transmission Date: 20211014
  Serious: Yes (Other)
  Sender: FDA-Public Use
  Company Number: DE-PFIZER INC-202100992915

PATIENT
  Sex: Female
  Weight: 84 kg

DRUGS (19)
  1. TOREMIFENE [Suspect]
     Active Substance: TOREMIFENE
     Dosage: 5 MG, QD (1?0?0?0 / DAILY)
     Route: 065
  2. CLEXANE [Suspect]
     Active Substance: ENOXAPARIN SODIUM
     Indication: THROMBOSIS PROPHYLAXIS
     Dosage: 160 MILLIGRAM, QD
     Route: 065
  3. ELIQUIS [Suspect]
     Active Substance: APIXABAN
     Dosage: UNK
     Route: 065
     Dates: start: 2021
  4. ACETYLSALICYLIC ACID [Suspect]
     Active Substance: ASPIRIN
     Indication: SURGERY
  5. BISOPROLOL 1A PHARMA [Suspect]
     Active Substance: BISOPROLOL
     Indication: CARDIAC DISORDER
     Dosage: 5 MG QD (HALF?0?0)
     Route: 048
     Dates: start: 20210701
  6. MORPHINE [Suspect]
     Active Substance: MORPHINE
     Indication: SURGERY
     Dosage: UNK
     Route: 065
     Dates: start: 201910
  7. SEDACUR [Suspect]
     Active Substance: HOPS\MELISSA OFFICINALIS\VALERIAN EXTRACT
     Indication: ANXIETY
     Dosage: UNK UNK, TID (2?2?0?2)
     Route: 065
  8. BISOHEXAL [Suspect]
     Active Substance: BISOPROLOL FUMARATE
     Dosage: 5 MILLIGRAM, QD
     Route: 065
  9. PANTOZOL [Suspect]
     Active Substance: PANTOPRAZOLE SODIUM
     Dosage: 40 MILLIGRAM, QD
     Route: 065
     Dates: start: 201910
  10. ACETYLSALICYLIC ACID [Suspect]
     Active Substance: ASPIRIN
     Indication: CIRCULATORY COLLAPSE
     Dosage: 100 MILLIGRAM, QD
     Route: 065
     Dates: start: 201910, end: 2021
  11. BISOPROLOL 1A PHARMA [Suspect]
     Active Substance: BISOPROLOL
     Indication: HYPERTENSION
     Dosage: 5 MG, BID (HALF?0?HALF, INTAKE TWICE DAILY)
     Route: 048
     Dates: start: 201911, end: 20210601
  12. TOREM [TORASEMIDE] [Suspect]
     Active Substance: TORSEMIDE
     Dosage: 5 MG, QD (1?0?0?0 / DAILY)
     Route: 065
  13. ACETYLSALICYLIC ACID [Suspect]
     Active Substance: ASPIRIN
     Indication: THROMBOSIS PROPHYLAXIS
     Dosage: UNK
     Route: 065
     Dates: start: 2021
  14. PALLADONE [Suspect]
     Active Substance: HYDROMORPHONE HYDROCHLORIDE
     Dosage: 8 MILLIGRAM, QD
     Route: 065
  15. CLEXANE [Suspect]
     Active Substance: ENOXAPARIN SODIUM
     Dosage: 160 MILLIGRAM, QD
     Route: 065
     Dates: start: 2019
  16. ELIQUIS [Suspect]
     Active Substance: APIXABAN
     Indication: SURGERY
     Dosage: 5 MG, 2X/DAY
     Route: 065
     Dates: start: 201911, end: 2021
  17. CORDAREX [Suspect]
     Active Substance: AMIODARONE
     Dosage: 200 MG, QID (1?1?1?1 / DAILY)
     Route: 065
     Dates: start: 20191026
  18. CORDAREX [Suspect]
     Active Substance: AMIODARONE
     Dosage: 800 MILLIGRAM, QD
     Route: 065
     Dates: start: 20191026
  19. APIXABAN [Concomitant]
     Active Substance: APIXABAN
     Dosage: 10 MILLIGRAM, QD
     Route: 065

REACTIONS (43)
  - Osteochondrosis [Unknown]
  - Aortic dissection [Unknown]
  - Paraesthesia [Unknown]
  - Cervicobrachial syndrome [Unknown]
  - Aortic arteriosclerosis [Unknown]
  - Aortic valve incompetence [Unknown]
  - Hypertensive heart disease [Unknown]
  - Depression [Unknown]
  - Spinal stenosis [Unknown]
  - Pain [Unknown]
  - Hypersensitivity [Unknown]
  - Autoimmune thyroiditis [Unknown]
  - Aortic thrombosis [Unknown]
  - Carpal tunnel syndrome [Unknown]
  - Visual brightness [Recovering/Resolving]
  - Intervertebral disc disorder [Unknown]
  - Chronic obstructive pulmonary disease [Unknown]
  - Leukoplakia [Unknown]
  - Aortic aneurysm [Unknown]
  - Varicose vein [Unknown]
  - Constipation [Unknown]
  - Cerebral microangiopathy [Unknown]
  - Senile dementia [Unknown]
  - Nephrolithiasis [Unknown]
  - Syncope [Unknown]
  - Mitral valve incompetence [Unknown]
  - Visual impairment [Not Recovered/Not Resolved]
  - Obesity [Unknown]
  - Pain in extremity [Unknown]
  - Chronic gastritis [Unknown]
  - Dyschromatopsia [Not Recovered/Not Resolved]
  - Hypertension [Unknown]
  - Hepatic cyst [Unknown]
  - Osteoarthritis [Unknown]
  - Diplopia [Not Recovered/Not Resolved]
  - Lichen planus [Unknown]
  - Hiatus hernia [Unknown]
  - Chondropathy [Unknown]
  - Atrial fibrillation [Unknown]
  - Meningioma [Unknown]
  - Diverticulum intestinal [Unknown]
  - Rash papular [Unknown]
  - Hypercholesterolaemia [Unknown]

NARRATIVE: CASE EVENT DATE: 20000621
